FAERS Safety Report 4562382-X (Version None)
Quarter: 2005Q1

REPORT INFORMATION
  Report Type: 
  Country: None (occurrence: None)
  Receive Date: 20050121
  Receipt Date: 20050110
  Transmission Date: 20050727
  Serious: Yes (Life-Threatening, Other)
  Sender: FDA-Public Use
  Company Number: 2005-BP-00336BP

PATIENT
  Age: 29 Year
  Sex: Female

DRUGS (2)
  1. VIRAMUNE [Suspect]
     Indication: HIV INFECTION
     Dosage: 2 IN 1 D, PO
     Route: 048
     Dates: start: 20040924, end: 20050106
  2. COMBIVIR [Suspect]
     Indication: HIV INFECTION
     Dosage: 2 IN 1 D, PO
     Route: 048
     Dates: end: 20050106

REACTIONS (3)
  - DRUG EXPOSURE DURING PREGNANCY [None]
  - NEUTROPENIA [None]
  - PALLOR [None]
